FAERS Safety Report 11252042 (Version 1)
Quarter: 2015Q3

REPORT INFORMATION
  Report Type: Spontaneous
  Country: US (occurrence: US)
  Receive Date: 20150708
  Receipt Date: 20150708
  Transmission Date: 20151125
  Serious: Yes (Hospitalization)
  Sender: FDA-Public Use
  Company Number: US-ELI_LILLY_AND_COMPANY-US201212004895

PATIENT
  Sex: Female
  Weight: 50 kg

DRUGS (1)
  1. ALIMTA [Suspect]
     Active Substance: PEMETREXED DISODIUM
     Indication: NON-SMALL CELL LUNG CANCER
     Dosage: 770 MG, OTHER
     Route: 042
     Dates: start: 20111122, end: 20121127

REACTIONS (2)
  - Pneumonia [Recovered/Resolved]
  - Malignant neoplasm progression [Unknown]
